FAERS Safety Report 4284548-9 (Version None)
Quarter: 2004Q1

REPORT INFORMATION
  Report Type: 
  Country: None (occurrence: None)
  Receive Date: 20040130
  Receipt Date: 20040113
  Transmission Date: 20041129
  Serious: Yes (Death)
  Sender: FDA-Public Use
  Company Number: US_040199883

PATIENT
  Sex: Male

DRUGS (2)
  1. FLUOXETINE HCL [Suspect]
     Dosage: 40 MG
     Dates: start: 20010208
  2. WELLBUTRIN [Concomitant]

REACTIONS (8)
  - ANTIDEPRESSANT DRUG LEVEL ABOVE THERAPEUTIC [None]
  - COMPLETED SUICIDE [None]
  - EXTRAPYRAMIDAL DISORDER [None]
  - FEELING ABNORMAL [None]
  - GUN SHOT WOUND [None]
  - HALLUCINATION, AUDITORY [None]
  - HOMICIDAL IDEATION [None]
  - TREMOR [None]
